FAERS Safety Report 20381701 (Version 1)
Quarter: 2022Q1

REPORT INFORMATION
  Report Type: Spontaneous
  Country: US (occurrence: US)
  Receive Date: 20220127
  Receipt Date: 20220127
  Transmission Date: 20220423
  Serious: No
  Sender: FDA-Public Use
  Company Number: US-PCCINC-2020-PEL-000803

PATIENT

DRUGS (2)
  1. GABLOFEN [Suspect]
     Active Substance: BACLOFEN
     Indication: Cerebral palsy
     Dosage: UNK
     Route: 037
  2. GABLOFEN [Suspect]
     Active Substance: BACLOFEN
     Indication: Muscle spasticity

REACTIONS (3)
  - Granuloma [Not Recovered/Not Resolved]
  - Device infusion issue [Not Recovered/Not Resolved]
  - Therapy partial responder [Unknown]
